FAERS Safety Report 7015658-0 (Version None)
Quarter: 2010Q3

REPORT INFORMATION
  Report Type: 
  Country: None (occurrence: None)
  Receive Date: 20100927
  Receipt Date: 20100920
  Transmission Date: 20110219
  Serious: Yes (Death, Hospitalization, Other)
  Sender: FDA-Public Use
  Company Number: US-ABBOTT-10P-163-0644074-00

PATIENT
  Sex: Female

DRUGS (25)
  1. HUMIRA [Suspect]
     Indication: CROHN'S DISEASE
     Route: 058
     Dates: start: 20090413, end: 20091201
  2. TYLENOL [Concomitant]
     Indication: PAIN
     Dosage: EVERY 4 HOURS AS NEEDED
     Route: 048
  3. TYLENOL [Concomitant]
     Indication: BODY TEMPERATURE
  4. CORDARONE [Concomitant]
     Indication: HYPERTENSION
     Route: 048
  5. DELTA-D, VITAMIN D3 [Concomitant]
     Indication: PRODUCT USED FOR UNKNOWN INDICATION
     Dosage: 400 MG X 2.5 TABLETS
     Route: 048
  6. LOVENOX [Concomitant]
     Indication: PRODUCT USED FOR UNKNOWN INDICATION
     Route: 058
  7. FOLVITE [Concomitant]
     Indication: PRODUCT USED FOR UNKNOWN INDICATION
     Route: 048
  8. GLUCAGEN [Concomitant]
     Indication: PRODUCT USED FOR UNKNOWN INDICATION
     Route: 030
  9. NOVOLOG [Concomitant]
     Indication: PRODUCT USED FOR UNKNOWN INDICATION
     Dosage: 100 UNIT/ML
     Route: 058
  10. XOPENEX [Concomitant]
     Indication: DYSPNOEA
     Dosage: EVERY 6 HOURS AS NEEDED
     Route: 055
  11. XOPENEX [Concomitant]
     Indication: WHEEZING
  12. IMODIUM [Concomitant]
     Indication: DIARRHOEA
     Dosage: 4 TIMES DAILY AS NEEDED
     Route: 048
  13. IMODIUM [Concomitant]
  14. CALMOSEPTINE [Concomitant]
     Indication: PRODUCT USED FOR UNKNOWN INDICATION
     Route: 061
  15. METFORMIN HCL [Concomitant]
     Indication: PRODUCT USED FOR UNKNOWN INDICATION
     Dosage: 500 MG TABLETS
     Route: 048
  16. LOPRESSOR [Concomitant]
     Indication: PRODUCT USED FOR UNKNOWN INDICATION
     Route: 048
  17. CENTRUM SILVER [Concomitant]
     Indication: PRODUCT USED FOR UNKNOWN INDICATION
     Route: 048
  18. NEOSPORIN [Concomitant]
     Indication: PRODUCT USED FOR UNKNOWN INDICATION
     Route: 061
  19. ZOFRAN ODT [Concomitant]
     Indication: NAUSEA
     Dosage: EVERY 6 HOURS AS NEEDED
     Route: 048
  20. PROTONIX [Concomitant]
     Indication: PRODUCT USED FOR UNKNOWN INDICATION
     Route: 048
  21. METAMUCIL-2 [Concomitant]
     Indication: PRODUCT USED FOR UNKNOWN INDICATION
     Dosage: PACKET
     Route: 048
  22. OCEAN [Concomitant]
     Indication: PRODUCT USED FOR UNKNOWN INDICATION
     Dosage: 2 SPRAYS EACH NOSTRIL 3 TIMES A DAY
     Route: 045
  23. EUCERIN [Concomitant]
     Indication: PRODUCT USED FOR UNKNOWN INDICATION
     Route: 061
  24. AMBIEN [Concomitant]
     Indication: INSOMNIA
     Dosage: ONE TABLET NIGHTLY AS NEEDED
     Route: 048
  25. CITRUCEL [Concomitant]
     Indication: PRODUCT USED FOR UNKNOWN INDICATION

REACTIONS (16)
  - ABDOMINAL PAIN [None]
  - ASTHENIA [None]
  - CLOSTRIDIAL INFECTION [None]
  - CONFUSIONAL STATE [None]
  - DECUBITUS ULCER [None]
  - DEHYDRATION [None]
  - HYPOXIA [None]
  - LEUKOCYTOSIS [None]
  - MALNUTRITION [None]
  - MEGACOLON [None]
  - MENTAL STATUS CHANGES [None]
  - MYOPATHY [None]
  - RENAL FAILURE ACUTE [None]
  - SEPSIS [None]
  - SHOCK [None]
  - URINARY TRACT INFECTION [None]
